APPROVED DRUG PRODUCT: NOVRAD
Active Ingredient: LEVOPROPOXYPHENE NAPSYLATE ANHYDROUS
Strength: EQ 50MG BASE/5ML
Dosage Form/Route: SUSPENSION;ORAL
Application: N012928 | Product #002
Applicant: ELI LILLY INDUSTRIES INC
Approved: Approved Prior to Jan 1, 1982 | RLD: No | RS: No | Type: DISCN